FAERS Safety Report 8979524 (Version 1)
Quarter: 2012Q4

REPORT INFORMATION
  Report Type: Report from Study
  Country: HU (occurrence: HU)
  Receive Date: 20121221
  Receipt Date: 20121221
  Transmission Date: 20130627
  Serious: Yes (Death, Hospitalization, Other)
  Sender: FDA-Public Use
  Company Number: PHHY2012HU112942

PATIENT
  Age: 58 Year
  Sex: Female
  Weight: 62 kg

DRUGS (5)
  1. CGS 20267 [Suspect]
     Indication: BREAST CANCER
     Dosage: 2.5 mg, daily
     Route: 048
     Dates: start: 200901, end: 201002
  2. TRITACE [Concomitant]
  3. CONCOR [Concomitant]
  4. ATORVA [Concomitant]
  5. CHEMOTHERAPEUTICS [Concomitant]

REACTIONS (5)
  - Metastases to lung [Fatal]
  - Metastases to liver [Fatal]
  - Metastases to bone [Fatal]
  - Emotional disorder [Unknown]
  - Dyspnoea [Unknown]
